FAERS Safety Report 24006127 (Version 1)
Quarter: 2024Q2

REPORT INFORMATION
  Report Type: Spontaneous
  Country: US (occurrence: None)
  Receive Date: 20240622
  Receipt Date: 20240622
  Transmission Date: 20240716
  Serious: Yes (Hospitalization)
  Sender: FDA-Public Use
  Company Number: None

PATIENT
  Age: 43 Year
  Sex: Male
  Weight: 136 kg

DRUGS (1)
  1. PRAVASTATIN SODIUM [Suspect]
     Active Substance: PRAVASTATIN SODIUM
     Dosage: FREQUENCY : DAILY;?
     Route: 048
     Dates: start: 20180418, end: 20240517

REACTIONS (5)
  - Hypoaesthesia [None]
  - Rhabdomyolysis [None]
  - Muscle injury [None]
  - Therapy interrupted [None]
  - Blood triglycerides increased [None]

NARRATIVE: CASE EVENT DATE: 20240517
